FAERS Safety Report 7912622-1 (Version None)
Quarter: 2011Q4

REPORT INFORMATION
  Report Type: 
  Country: None (occurrence: None)
  Receive Date: 20111114
  Receipt Date: 20111109
  Transmission Date: 20120403
  Serious: No
  Sender: FDA-Public Use
  Company Number: US-PFIZER INC-2011227673

PATIENT
  Sex: Female

DRUGS (3)
  1. AZITHROMYCIN [Suspect]
     Dosage: 600MG (200MG / 5ML)
  2. ALBUTEROL [Concomitant]
     Indication: ASTHMA
     Dosage: UNK
     Route: 045
  3. AZITHROMYCIN [Suspect]
     Indication: UPPER RESPIRATORY TRACT INFECTION
     Dosage: 1 TEASPOONFUL,  X/DAY
     Route: 048
     Dates: start: 20110922, end: 20110922

REACTIONS (3)
  - PSYCHOMOTOR HYPERACTIVITY [None]
  - POOR QUALITY DRUG ADMINISTERED [None]
  - LETHARGY [None]
